FAERS Safety Report 5523798-8 (Version None)
Quarter: 2007Q4

REPORT INFORMATION
  Report Type: 
  Country: None (occurrence: None)
  Receive Date: 20071119
  Receipt Date: 20071105
  Transmission Date: 20080405
  Serious: Yes (Other)
  Sender: FDA-Public Use
  Company Number: 2007P1000689

PATIENT
  Age: 21 Year
  Sex: Male

DRUGS (7)
  1. BUSULFAN (BUSULFAN) [Suspect]
     Indication: STEM CELL TRANSPLANT
     Dosage: 33.2 ML; QD; IV
     Route: 042
     Dates: start: 20070321, end: 20070324
  2. MICAFUNGIN SODIUM (MICAFUNGIN SODIUM) [Suspect]
     Indication: HYPERBILIRUBINAEMIA
  3. CYCLOPHOSPHAMIDE [Concomitant]
  4. VALPROATE SODIUM [Concomitant]
  5. NEUPOGEN [Concomitant]
  6. METHOTREXATE [Concomitant]
  7. CYCLOSPORINE [Concomitant]

REACTIONS (4)
  - DIARRHOEA [None]
  - HYPERBILIRUBINAEMIA [None]
  - STAPHYLOCOCCAL SEPSIS [None]
  - STREPTOCOCCAL SEPSIS [None]
